FAERS Safety Report 7372193-8 (Version None)
Quarter: 2011Q1

REPORT INFORMATION
  Report Type: 
  Country: None (occurrence: None)
  Receive Date: 20110324
  Receipt Date: 20110316
  Transmission Date: 20110831
  Serious: Yes (Hospitalization)
  Sender: FDA-Public Use
  Company Number: FR-AMGEN-FRANI2011006727

PATIENT
  Sex: Male
  Weight: 69 kg

DRUGS (1)
  1. DARBEPOETIN ALFA [Suspect]
     Indication: RENAL FAILURE
     Dosage: 60 A?G, Q2WK
     Route: 058

REACTIONS (2)
  - THERAPEUTIC RESPONSE DECREASED [None]
  - IRON DEFICIENCY [None]
